FAERS Safety Report 4283281-7 (Version None)
Quarter: 2004Q1

REPORT INFORMATION
  Report Type: 
  Country: None (occurrence: None)
  Receive Date: 20040129
  Receipt Date: 20040115
  Transmission Date: 20041129
  Serious: Yes (Other)
  Sender: FDA-Public Use
  Company Number: CZ-JNJFOC-20040103420

PATIENT
  Age: 57 Year
  Sex: Female

DRUGS (2)
  1. REMICADE [Suspect]
     Indication: RHEUMATOID ARTHRITIS
     Dosage: 3 MG/KG, 1 IN 8 WEEK , INTRAVENOUS
     Route: 042
     Dates: start: 20020701, end: 20031001
  2. METHOTREXATE [Concomitant]

REACTIONS (2)
  - LYMPHADENOPATHY [None]
  - TUBERCULOSIS [None]
